FAERS Safety Report 21005574 (Version 1)
Quarter: 2022Q2

REPORT INFORMATION
  Report Type: Spontaneous
  Country: US (occurrence: None)
  Receive Date: 20220624
  Receipt Date: 20220624
  Transmission Date: 20220720
  Serious: No
  Sender: FDA-Public Use
  Company Number: None

PATIENT
  Sex: Female

DRUGS (1)
  1. DUPIXENT [Suspect]
     Active Substance: DUPILUMAB
     Indication: Eczema
     Dosage: FREQUENCY : AS DIRECTED;?
     Route: 058
     Dates: start: 20220622

REACTIONS (4)
  - Device failure [None]
  - Product dose omission issue [None]
  - Incorrect dose administered by device [None]
  - Device defective [None]
